FAERS Safety Report 9339016 (Version 1)
Quarter: 2013Q2

REPORT INFORMATION
  Report Type: Spontaneous
  Country: US (occurrence: US)
  Receive Date: 20130610
  Receipt Date: 20130610
  Transmission Date: 20140414
  Serious: No
  Sender: FDA-Public Use
  Company Number: US-GLAXOSMITHKLINE-A0976277A

PATIENT
  Age: 45 Year
  Sex: Female

DRUGS (2)
  1. ALTABAX [Suspect]
     Indication: RASH
     Dosage: 1APP TWICE PER DAY
     Route: 061
     Dates: start: 20120502, end: 20120502
  2. LEVOTHYROXINE [Concomitant]

REACTIONS (2)
  - Rash [Not Recovered/Not Resolved]
  - Burning sensation [Unknown]
